FAERS Safety Report 24996926 (Version 1)
Quarter: 2025Q1

REPORT INFORMATION
  Report Type: Spontaneous
  Country: CN (occurrence: CN)
  Receive Date: 20250221
  Receipt Date: 20250221
  Transmission Date: 20250409
  Serious: Yes (Other)
  Sender: PFIZER
  Company Number: CN-PFIZER INC-PV202500020023

PATIENT
  Age: 66 Year
  Sex: Female
  Weight: 50 kg

DRUGS (3)
  1. METHOTREXATE SODIUM [Suspect]
     Active Substance: METHOTREXATE SODIUM
     Indication: Therapeutic procedure
     Dosage: 1.5 G, 1X/DAY (MAINTAINED FOR 24H, D1)
     Route: 041
     Dates: start: 20241128, end: 20241228
  2. CYTARABINE [Concomitant]
     Active Substance: CYTARABINE
     Indication: Therapeutic procedure
     Dosage: 3 G, 2X/DAY (Q12H D2-3)
     Route: 041
     Dates: start: 20241129, end: 20241201
  3. RITUXIMAB [Concomitant]
     Active Substance: RITUXIMAB
     Indication: Diffuse large B-cell lymphoma
     Dates: start: 20241128

REACTIONS (6)
  - Myelosuppression [Not Recovered/Not Resolved]
  - Septic shock [Unknown]
  - Respiratory failure [Unknown]
  - Hypoxia [Unknown]
  - Cardiac failure [Unknown]
  - Hepatic failure [Unknown]

NARRATIVE: CASE EVENT DATE: 20241204
